FAERS Safety Report 8004698-0 (Version None)
Quarter: 2011Q4

REPORT INFORMATION
  Report Type: 
  Country: None (occurrence: None)
  Receive Date: 20111220
  Receipt Date: 20111209
  Transmission Date: 20120403
  Serious: Yes (Hospitalization)
  Sender: FDA-Public Use
  Company Number: LTI2011A00314

PATIENT
  Age: 70 Year
  Sex: Female

DRUGS (1)
  1. PIOGLITAZONE HYDROCHLORIDE/METFORMIN HYDROCHLORIDE [Suspect]
     Indication: TYPE 2 DIABETES MELLITUS
     Dosage: 1 DF, 1 D, ORAL
     Route: 048
     Dates: start: 20100101, end: 20100101

REACTIONS (1)
  - BLADDER NEOPLASM SURGERY [None]
